FAERS Safety Report 20814205 (Version 1)
Quarter: 2022Q2

REPORT INFORMATION
  Report Type: Spontaneous
  Country: US (occurrence: None)
  Receive Date: 20220510
  Receipt Date: 20220510
  Transmission Date: 20220720
  Serious: Yes (Other)
  Sender: FDA-Public Use
  Company Number: None

PATIENT
  Age: 11 Year
  Sex: Male
  Weight: 61.2 kg

DRUGS (1)
  1. MIRALAX [Suspect]
     Active Substance: POLYETHYLENE GLYCOL 3350
     Indication: Constipation
     Dosage: OTHER QUANTITY : 1 CAPFUL;?FREQUENCY : DAILY;?
     Route: 048
     Dates: start: 20180401, end: 20220502

REACTIONS (2)
  - Aggression [None]
  - Aggression [None]

NARRATIVE: CASE EVENT DATE: 20220501
